FAERS Safety Report 8216480-X (Version None)
Quarter: 2012Q1

REPORT INFORMATION
  Report Type: 
  Country: None (occurrence: None)
  Receive Date: 20120316
  Receipt Date: 20120309
  Transmission Date: 20120608
  Serious: Yes (Other)
  Sender: FDA-Public Use
  Company Number: US-ABBOTT-12P-163-0912606-00

PATIENT
  Sex: Female
  Weight: 149.82 kg

DRUGS (3)
  1. ATIVAN [Concomitant]
     Indication: PRODUCT USED FOR UNKNOWN INDICATION
  2. SYNTHROID [Suspect]
     Indication: HYPOTHYROIDISM
     Dates: start: 19970101
  3. PRILOSEC [Concomitant]
     Indication: PRODUCT USED FOR UNKNOWN INDICATION

REACTIONS (9)
  - HEADACHE [None]
  - BENIGN INTRACRANIAL HYPERTENSION [None]
  - DIZZINESS [None]
  - NAUSEA [None]
  - CSF VOLUME INCREASED [None]
  - MIGRAINE [None]
  - OPTIC NERVE INJURY [None]
  - VISUAL ACUITY REDUCED [None]
  - BRAIN OEDEMA [None]
